FAERS Safety Report 8177258-9 (Version None)
Quarter: 2012Q1

REPORT INFORMATION
  Report Type: 
  Country: None (occurrence: None)
  Receive Date: 20120301
  Receipt Date: 20120223
  Transmission Date: 20120608
  Serious: Yes (Life-Threatening, Hospitalization)
  Sender: FDA-Public Use
  Company Number: US-BRISTOL-MYERS SQUIBB COMPANY-16415267

PATIENT
  Age: 68 Year
  Sex: Male
  Weight: 56 kg

DRUGS (11)
  1. ZOFRAN [Concomitant]
  2. ATIVAN [Concomitant]
  3. THORAZINE [Concomitant]
  4. CLEOCIN HYDROCHLORIDE [Concomitant]
  5. COMPAZINE [Concomitant]
  6. MULTI-VITAMIN [Concomitant]
  7. CETUXIMAB [Suspect]
     Indication: HEAD AND NECK CANCER
     Dates: start: 20111208
  8. FLUOROURACIL [Suspect]
     Indication: HEAD AND NECK CANCER
     Dosage: RECENT DOSE: 19-JAN-2012
     Dates: start: 20111208
  9. FISH OIL [Concomitant]
  10. CARBOPLATIN [Suspect]
     Indication: HEAD AND NECK CANCER
     Dosage: 1 DF = 5 AUC
     Dates: start: 20111208
  11. AMBIEN [Concomitant]

REACTIONS (1)
  - PNEUMATOSIS INTESTINALIS [None]
